FAERS Safety Report 6572882-9 (Version None)
Quarter: 2010Q1

REPORT INFORMATION
  Report Type: 
  Country: None (occurrence: None)
  Receive Date: 20100207
  Receipt Date: 20100201
  Transmission Date: 20100710
  Serious: Yes (Other)
  Sender: FDA-Public Use
  Company Number: US-ELI_LILLY_AND_COMPANY-US201002000613

PATIENT
  Sex: Male

DRUGS (2)
  1. HUMALOG [Suspect]
  2. LEVEMIR [Concomitant]

REACTIONS (8)
  - BLINDNESS [None]
  - BLOOD GLUCOSE DECREASED [None]
  - BLOOD GLUCOSE INCREASED [None]
  - DYSPNOEA [None]
  - FATIGUE [None]
  - HEARING IMPAIRED [None]
  - UNEVALUABLE EVENT [None]
  - VISUAL IMPAIRMENT [None]
